FAERS Safety Report 7623755-1 (Version None)
Quarter: 2011Q3

REPORT INFORMATION
  Report Type: 
  Country: None (occurrence: None)
  Receive Date: 20110720
  Receipt Date: 20110712
  Transmission Date: 20111222
  Serious: Yes (Other)
  Sender: FDA-Public Use
  Company Number: JP-GLAXOSMITHKLINE-B0728286A

PATIENT
  Sex: Female
  Weight: 63 kg

DRUGS (3)
  1. LOXONIN [Concomitant]
     Dosage: 3IUAX PER DAY
     Route: 048
     Dates: start: 20110620, end: 20110621
  2. VALTREX [Suspect]
     Indication: HERPES ZOSTER
     Dosage: 3000MG PER DAY
     Route: 048
     Dates: start: 20110620, end: 20110621
  3. ISALON [Concomitant]
     Dosage: 3IUAX PER DAY
     Route: 048
     Dates: start: 20110620, end: 20110621

REACTIONS (3)
  - DIZZINESS [None]
  - ALTERED STATE OF CONSCIOUSNESS [None]
  - GAIT DISTURBANCE [None]
